FAERS Safety Report 7163263-8 (Version None)
Quarter: 2010Q4

REPORT INFORMATION
  Report Type: 
  Country: None (occurrence: None)
  Receive Date: 20101215
  Receipt Date: 20100420
  Transmission Date: 20110411
  Serious: No
  Sender: FDA-Public Use
  Company Number: US-ABBOTT-10P-163-0640725-00

PATIENT
  Age: 41 Year
  Sex: Male

DRUGS (2)
  1. HYTRIN [Suspect]
     Indication: URETERIC DILATATION
     Dates: start: 20100413, end: 20100417
  2. HYTRIN [Suspect]
     Indication: NEPHROLITHIASIS
     Dosage: ON 21 APR 2010 THE DOSE WILL BE INCREASED TO 5MG A DAY
     Dates: start: 20100417

REACTIONS (1)
  - ABNORMAL DREAMS [None]
